FAERS Safety Report 7945215-0 (Version None)
Quarter: 2011Q4

REPORT INFORMATION
  Report Type: 
  Country: None (occurrence: None)
  Receive Date: 20111129
  Receipt Date: 20110404
  Transmission Date: 20120403
  Serious: No
  Sender: FDA-Public Use
  Company Number: US-GLAXOSMITHKLINE-A0921305A

PATIENT
  Age: 75 Year
  Sex: Female

DRUGS (12)
  1. ALLEGRA [Concomitant]
  2. ATIVAN [Concomitant]
  3. ZOFRAN [Concomitant]
  4. LISINOPRIL [Concomitant]
  5. PENICILLIN [Concomitant]
  6. ASPIRIN [Concomitant]
  7. OXYCODONE HCL [Concomitant]
  8. HYDROXYZINE [Concomitant]
  9. PAIN MEDICATION [Concomitant]
  10. FLOVENT [Suspect]
     Indication: ASTHMA
     Dosage: 1PUFF TWICE PER DAY
     Route: 055
     Dates: start: 20110331
  11. TRAMADOL HCL [Concomitant]
  12. NEXIUM [Concomitant]

REACTIONS (1)
  - CANDIDIASIS [None]
